APPROVED DRUG PRODUCT: METRONIDAZOLE IN PLASTIC CONTAINER
Active Ingredient: METRONIDAZOLE
Strength: 500MG/100ML
Dosage Form/Route: INJECTABLE;INJECTION
Application: A217665 | Product #001 | TE Code: AP
Applicant: AMNEAL EU LTD
Approved: May 24, 2023 | RLD: No | RS: No | Type: RX